FAERS Safety Report 4598335-5 (Version None)
Quarter: 2005Q1

REPORT INFORMATION
  Report Type: 
  Country: None (occurrence: None)
  Receive Date: 20050304
  Receipt Date: 20050222
  Transmission Date: 20050727
  Serious: Yes (Other)
  Sender: FDA-Public Use
  Company Number: GBWYE456124FEB05

PATIENT
  Age: 14 Year
  Sex: Female

DRUGS (4)
  1. ENBREL [Suspect]
     Indication: DRUG USE FOR UNKNOWN INDICATION
     Dosage: UNKNOWN
  2. METHOTREXATE [Concomitant]
  3. CORTICOSTEROID NOS [Concomitant]
  4. ANTIINFLAMMATORY NOS [Concomitant]

REACTIONS (3)
  - CONDITION AGGRAVATED [None]
  - MALAISE [None]
  - URINARY TRACT INFECTION [None]
